FAERS Safety Report 5604060-1 (Version None)
Quarter: 2008Q1

REPORT INFORMATION
  Report Type: 
  Country: None (occurrence: None)
  Receive Date: 20080128
  Receipt Date: 20080118
  Transmission Date: 20080703
  Serious: Yes (Other)
  Sender: FDA-Public Use
  Company Number: PHBS2008CH01049

PATIENT
  Age: 43 Year
  Sex: Female

DRUGS (4)
  1. CARBAMAZEPINE [Suspect]
     Dosage: 20 TO 400 MG/DAY
  2. VALPROATE BISMUTH [Concomitant]
  3. CHLORAL HYDRATE [Concomitant]
  4. MELITRACEN-FLUPENTIXOL [Concomitant]

REACTIONS (4)
  - ANXIETY [None]
  - ECCHYMOSIS [None]
  - INSOMNIA [None]
  - PURPURA [None]
